FAERS Safety Report 7918870-9 (Version None)
Quarter: 2011Q4

REPORT INFORMATION
  Report Type: 
  Country: None (occurrence: None)
  Receive Date: 20111116
  Receipt Date: 20111109
  Transmission Date: 20120403
  Serious: Yes (Other)
  Sender: FDA-Public Use
  Company Number: PHHY2011GB098648

PATIENT
  Age: 78 Year
  Sex: Male

DRUGS (5)
  1. VIAZEM XL [Concomitant]
  2. LOSARTAN [Suspect]
     Indication: HYPERTENSION
     Dosage: 25 MG, QD
     Route: 048
     Dates: start: 20111024, end: 20111028
  3. SIMVASTATIN [Concomitant]
  4. ASPIRIN [Concomitant]
  5. DOXAZOSIN MESYLATE [Concomitant]

REACTIONS (1)
  - ASTHMA [None]
